APPROVED DRUG PRODUCT: GABAPENTIN
Active Ingredient: GABAPENTIN
Strength: 100MG
Dosage Form/Route: CAPSULE;ORAL
Application: A075360 | Product #001 | TE Code: AB
Applicant: GRANULES INDIA LTD
Approved: Apr 6, 2005 | RLD: No | RS: No | Type: RX